FAERS Safety Report 10636777 (Version 1)
Quarter: 2014Q4

REPORT INFORMATION
  Report Type: Spontaneous
  Country: DE (occurrence: DE)
  Receive Date: 20141208
  Receipt Date: 20141208
  Transmission Date: 20150529
  Serious: Yes (Congenital Anomaly, Other)
  Sender: FDA-Public Use
  Company Number: DE-DRREDDYS-GER/GER/14/0044782

PATIENT
  Age: 1 Day
  Sex: Female
  Weight: 2.89 kg

DRUGS (2)
  1. CITALOPRAM [Suspect]
     Active Substance: CITALOPRAM HYDROBROMIDE
     Indication: PRODUCT USED FOR UNKNOWN INDICATION
     Route: 064
     Dates: start: 20110814, end: 20120517
  2. FOLSAEURE [Concomitant]
     Active Substance: FOLIC ACID
     Indication: PRODUCT USED FOR UNKNOWN INDICATION
     Route: 064
     Dates: start: 20110814, end: 20120517

REACTIONS (7)
  - Syndactyly [Unknown]
  - Developmental hip dysplasia [Unknown]
  - Foetal exposure during pregnancy [Unknown]
  - Moebius II syndrome [Not Recovered/Not Resolved]
  - VIIth nerve paralysis [Not Recovered/Not Resolved]
  - Brachydactyly [Not Recovered/Not Resolved]
  - Dysmorphism [Unknown]

NARRATIVE: CASE EVENT DATE: 20120517
